FAERS Safety Report 9647687 (Version 1)
Quarter: 2013Q4

REPORT INFORMATION
  Report Type: Spontaneous
  Country: US (occurrence: None)
  Receive Date: 20131024
  Receipt Date: 20131024
  Transmission Date: 20140711
  Serious: Yes (Other)
  Sender: FDA-Public Use
  Company Number: None

PATIENT
  Age: 42 Year
  Sex: Male
  Weight: 92.99 kg

DRUGS (1)
  1. HYDROCODONE/ACETAMINOPHEN [Suspect]
     Indication: EXOSTOSIS
     Route: 048
     Dates: start: 20131021, end: 20131023

REACTIONS (5)
  - Spinal pain [None]
  - Neck pain [None]
  - Headache [None]
  - Product quality issue [None]
  - Product quality issue [None]
